FAERS Safety Report 10711651 (Version 1)
Quarter: 2015Q1

REPORT INFORMATION
  Report Type: Spontaneous
  Country: US (occurrence: US)
  Receive Date: 20150114
  Receipt Date: 20150114
  Transmission Date: 20150721
  Serious: Yes (Death)
  Sender: FDA-Public Use
  Company Number: US-PFIZER INC-2015008765

PATIENT
  Age: 50 Year
  Sex: Female

DRUGS (3)
  1. MORPHINE SULFATE. [Suspect]
     Active Substance: MORPHINE SULFATE
  2. COCAINE [Suspect]
     Active Substance: COCAINE
  3. CARBON MONOXIDE [Suspect]
     Active Substance: CARBON MONOXIDE

REACTIONS (2)
  - Death [Fatal]
  - Environmental exposure [Fatal]

NARRATIVE: CASE EVENT DATE: 2013
